FAERS Safety Report 17693996 (Version 1)
Quarter: 2020Q2

REPORT INFORMATION
  Report Type: Spontaneous
  Country: RO (occurrence: RO)
  Receive Date: 20200422
  Receipt Date: 20200422
  Transmission Date: 20200714
  Serious: Yes (Hospitalization)
  Sender: FDA-Public Use
  Company Number: RO-ROCHE-2582298

PATIENT
  Age: 72 Year

DRUGS (3)
  1. ROACTEMRA [Suspect]
     Active Substance: TOCILIZUMAB
     Indication: CORONAVIRUS INFECTION
     Dosage: 2 VIALS OF 400 MG
     Route: 042
  2. ROACTEMRA [Suspect]
     Active Substance: TOCILIZUMAB
     Dosage: 4 VIALS OF 400 MG
     Route: 042
  3. ROACTEMRA [Suspect]
     Active Substance: TOCILIZUMAB
     Dosage: 3 VIALS OF 400 MG
     Route: 042

REACTIONS (2)
  - General physical health deterioration [Unknown]
  - Off label use [Unknown]
